FAERS Safety Report 20207010 (Version 1)
Quarter: 2021Q4

REPORT INFORMATION
  Report Type: Spontaneous
  Country: ES (occurrence: ES)
  Receive Date: 20211220
  Receipt Date: 20211220
  Transmission Date: 20220303
  Serious: Yes (Other)
  Sender: FDA-Public Use
  Company Number: None

PATIENT
  Age: 14 Year
  Sex: Male
  Weight: 32 kg

DRUGS (4)
  1. METHYLPHENIDATE HYDROCHLORIDE [Suspect]
     Active Substance: METHYLPHENIDATE HYDROCHLORIDE
     Indication: Attention deficit hyperactivity disorder
     Dosage: UNK, 1.0 COMP C/24 H
     Route: 048
     Dates: start: 20190614
  2. SALBUTAMOL ALDO UNION [Concomitant]
     Indication: Asthma
     Dosage: UNK, 200.0 MCG C/8 HORAS, STRENGTH: 100 MICROGRAMS / DOSE
     Route: 050
     Dates: start: 20161219
  3. BUDESONIDE [Concomitant]
     Active Substance: BUDESONIDE
     Indication: Childhood asthma
     Dosage: UNK, 200.0 MCG C/12 H
     Route: 050
     Dates: start: 20200414
  4. Aerius [Concomitant]
     Indication: Childhood asthma
     Dosage: 5 MILLIGRAM, 5.0 MG DE
     Route: 048
     Dates: start: 20200415

REACTIONS (1)
  - Growth retardation [Unknown]

NARRATIVE: CASE EVENT DATE: 20200101
